FAERS Safety Report 5635313-9 (Version None)
Quarter: 2008Q1

REPORT INFORMATION
  Report Type: 
  Country: None (occurrence: None)
  Receive Date: 20080131
  Receipt Date: 20071010
  Transmission Date: 20080703
  Serious: No
  Sender: FDA-Public Use
  Company Number: 163-21880-07100641

PATIENT
  Age: 81 Year
  Sex: Female

DRUGS (2)
  1. REVLIMID [Suspect]
     Indication: MYELODYSPLASTIC SYNDROME
     Dosage: 10 MG, 1 IN 1 D, ORAL : 5 MG, 1 IN 1 D, ORAL
     Route: 048
     Dates: start: 20070604, end: 20070701
  2. REVLIMID [Suspect]
     Indication: MYELODYSPLASTIC SYNDROME
     Dosage: 10 MG, 1 IN 1 D, ORAL : 5 MG, 1 IN 1 D, ORAL
     Route: 048
     Dates: start: 20070730

REACTIONS (1)
  - CHONDROCALCINOSIS PYROPHOSPHATE [None]
